FAERS Safety Report 13026496 (Version 2)
Quarter: 2016Q4

REPORT INFORMATION
  Report Type: Spontaneous
  Country: US (occurrence: US)
  Receive Date: 20161214
  Receipt Date: 20161219
  Transmission Date: 20170207
  Serious: No
  Sender: FDA-Public Use
  Company Number: US-GLAXOSMITHKLINE-US2016GSK184756

PATIENT
  Age: 85 Year
  Sex: Female

DRUGS (2)
  1. BREO ELLIPTA [Suspect]
     Active Substance: FLUTICASONE FUROATE\VILANTEROL TRIFENATATE
     Indication: NASOPHARYNGITIS
     Dosage: 1 PUFF(S), QD
     Route: 055
     Dates: start: 20161205, end: 20161211
  2. PREDNISONE. [Concomitant]
     Active Substance: PREDNISONE

REACTIONS (6)
  - Nasopharyngitis [Unknown]
  - Chest pain [Recovering/Resolving]
  - Respiratory tract congestion [Recovering/Resolving]
  - Oropharyngeal pain [Recovering/Resolving]
  - Drug ineffective [Unknown]
  - Off label use [Unknown]

NARRATIVE: CASE EVENT DATE: 201612
